FAERS Safety Report 10841678 (Version 1)
Quarter: 2015Q1

REPORT INFORMATION
  Report Type: Report from Study
  Country: US (occurrence: US)
  Receive Date: 20150220
  Receipt Date: 20150220
  Transmission Date: 20150721
  Serious: No
  Sender: FDA-Public Use
  Company Number: US-ABBVIE-14P-163-1264111-00

PATIENT
  Sex: Female

DRUGS (7)
  1. AQUAPHOR [Suspect]
     Active Substance: PETROLATUM
     Indication: ECZEMA
     Dates: start: 2014, end: 2014
  2. CITRAL [Concomitant]
     Active Substance: CITRAL
     Indication: PRODUCT USED FOR UNKNOWN INDICATION
  3. PRENATAL VITAMINS [Concomitant]
     Active Substance: VITAMINS
     Indication: PRODUCT USED FOR UNKNOWN INDICATION
     Dosage: ONE
  4. STEROID [Suspect]
     Active Substance: UNSPECIFIED INGREDIENT
     Indication: ECZEMA
     Dosage: LOW DOSE
     Dates: start: 2014, end: 2014
  5. ZYRTEC [Concomitant]
     Active Substance: CETIRIZINE HYDROCHLORIDE
     Indication: PRODUCT USED FOR UNKNOWN INDICATION
     Dosage: ONE
  6. VITAMIN B12 [Concomitant]
     Active Substance: CYANOCOBALAMIN
     Indication: PRODUCT USED FOR UNKNOWN INDICATION
  7. HUMIRA [Suspect]
     Active Substance: ADALIMUMAB
     Indication: CROHN^S DISEASE
     Dates: start: 201201, end: 20140718

REACTIONS (8)
  - Rash pustular [Not Recovered/Not Resolved]
  - Pustular psoriasis [Recovered/Resolved]
  - Exfoliative rash [Recovered/Resolved]
  - Eczema [Recovered/Resolved]
  - Pustular psoriasis [Not Recovered/Not Resolved]
  - Drug ineffective [Unknown]
  - Rash [Not Recovered/Not Resolved]
  - Rash pustular [Recovered/Resolved]

NARRATIVE: CASE EVENT DATE: 2014
